FAERS Safety Report 13738972 (Version 1)
Quarter: 2017Q3

REPORT INFORMATION
  Report Type: Spontaneous
  Country: US (occurrence: US)
  Receive Date: 20170710
  Receipt Date: 20170710
  Transmission Date: 20171127
  Serious: Yes (Disabling, Other)
  Sender: FDA-Public Use
  Company Number: US-SAOL THERAPEUTICS-2017SAO00609

PATIENT
  Age: 59 Year
  Sex: Male
  Weight: 78.91 kg

DRUGS (9)
  1. BACLOFEN. [Suspect]
     Active Substance: BACLOFEN
     Indication: MUSCLE SPASTICITY
     Dosage: UNK
     Route: 037
     Dates: start: 20161128
  2. TRAMADOL. [Concomitant]
     Active Substance: TRAMADOL
  3. TAGAMET [Concomitant]
     Active Substance: CIMETIDINE
  4. FLEXERIL [Concomitant]
     Active Substance: CYCLOBENZAPRINE HYDROCHLORIDE
  5. MIRALAX [Concomitant]
     Active Substance: POLYETHYLENE GLYCOL 3350
  6. IBUPROFEN. [Concomitant]
     Active Substance: IBUPROFEN
  7. LYRICA [Concomitant]
     Active Substance: PREGABALIN
  8. BACLOFEN. [Concomitant]
     Active Substance: BACLOFEN
  9. BYSTOLIC [Concomitant]
     Active Substance: NEBIVOLOL HYDROCHLORIDE

REACTIONS (4)
  - Limb discomfort [Unknown]
  - Gait disturbance [Recovering/Resolving]
  - Blood pressure increased [Unknown]
  - Heart rate increased [Unknown]

NARRATIVE: CASE EVENT DATE: 20161128
